FAERS Safety Report 16805480 (Version 1)
Quarter: 2019Q3

REPORT INFORMATION
  Report Type: Spontaneous
  Country: CN (occurrence: CN)
  Receive Date: 20190913
  Receipt Date: 20190913
  Transmission Date: 20191005
  Serious: Yes (Death)
  Sender: FDA-Public Use
  Company Number: CN-PFIZER INC-2019392609

PATIENT
  Age: 79 Year
  Sex: Female

DRUGS (8)
  1. MECOBALAMIN [Concomitant]
     Active Substance: METHYLCOBALAMIN
  2. EPERISONE HCL [Concomitant]
  3. CELEBREX [Suspect]
     Active Substance: CELECOXIB
     Indication: PAIN IN EXTREMITY
     Dosage: 1 DF, 3X/DAY
     Route: 048
     Dates: start: 20190121, end: 20190122
  4. LIPITOR [Concomitant]
     Active Substance: ATORVASTATIN CALCIUM
     Dosage: 20 MG, DAILY
     Dates: start: 20190122
  5. CELEBREX [Suspect]
     Active Substance: CELECOXIB
     Indication: BACK PAIN
     Dosage: 1 DF, DAILY
     Route: 048
     Dates: start: 20190116
  6. CELEBREX [Suspect]
     Active Substance: CELECOXIB
     Indication: INTERVERTEBRAL DISC PROTRUSION
  7. NORVASC [Concomitant]
     Active Substance: AMLODIPINE BESYLATE
     Dosage: 5 MG, DAILY
     Dates: start: 20190122
  8. METFORMIN [Concomitant]
     Active Substance: METFORMIN HYDROCHLORIDE

REACTIONS (3)
  - Incorrect dose administered [Fatal]
  - Product prescribing error [Fatal]
  - Cardiac failure [Fatal]
